FAERS Safety Report 21147468 (Version 23)
Quarter: 2023Q1

REPORT INFORMATION
  Report Type: Report from Study
  Country: JP (occurrence: None)
  Receive Date: 20220729
  Receipt Date: 20230217
  Transmission Date: 20230417
  Serious: Yes (Hospitalization)
  Sender: FDA-Public Use
  Company Number: JP-Eisai Medical Research-EC-2022-120080

PATIENT
  Age: 69 Year
  Sex: Male
  Weight: 62 kg

DRUGS (13)
  1. LENVATINIB [Suspect]
     Active Substance: LENVATINIB
     Indication: Clear cell renal cell carcinoma
     Dosage: STATING DOSE AT 20 MG, FLUCTUATED DOSAGE
     Route: 048
     Dates: start: 20220526, end: 20220716
  2. QUAVONLIMAB [Suspect]
     Active Substance: QUAVONLIMAB
     Indication: Clear cell renal cell carcinoma
     Dosage: MK-1308A (MK-1308 25MG PLUS PEMBROLIZUMAB 400MG)
     Route: 042
     Dates: start: 20220526, end: 20220707
  3. PREDONINE [Suspect]
     Active Substance: PREDNISOLONE
     Indication: Acute kidney injury
     Route: 048
     Dates: start: 20220831, end: 20220907
  4. PREDNISOLONE SODIUM PHOSPHATE [Suspect]
     Active Substance: PREDNISOLONE SODIUM PHOSPHATE
     Indication: Acute kidney injury
     Route: 048
     Dates: start: 20220915, end: 20221013
  5. NIFEDIPINE [Concomitant]
     Active Substance: NIFEDIPINE
     Dates: start: 20201226, end: 20220808
  6. ALLOPURINOL [Concomitant]
     Active Substance: ALLOPURINOL
     Dates: start: 202111, end: 20220725
  7. HEPARINOID NICHIIKO [Concomitant]
     Dates: start: 20220526, end: 20220927
  8. PREDONINE [Concomitant]
     Active Substance: PREDNISOLONE
     Dates: start: 20220706, end: 20220711
  9. NEXIUM [Concomitant]
     Active Substance: ESOMEPRAZOLE MAGNESIUM
     Dates: start: 20220528, end: 20220711
  10. MIROGABALIN BESYLATE [Concomitant]
     Active Substance: MIROGABALIN BESYLATE
     Dates: start: 20220628, end: 20220713
  11. ADETPHOS [Concomitant]
     Active Substance: ADENOSINE TRIPHOSPHATE
     Dates: start: 20220630, end: 20220818
  12. METHYLCOBALAMIN [Concomitant]
     Active Substance: METHYLCOBALAMIN
     Dates: start: 20220630, end: 20220818
  13. PEMBROLIZUMAB [Suspect]
     Active Substance: PEMBROLIZUMAB

REACTIONS (6)
  - Type 1 diabetes mellitus [Recovering/Resolving]
  - Hyponatraemia [Recovered/Resolved]
  - Acute kidney injury [Recovering/Resolving]
  - Cytomegalovirus infection [Recovered/Resolved]
  - Acidosis [Recovered/Resolved]
  - Cellulitis [Recovered/Resolved]

NARRATIVE: CASE EVENT DATE: 20220721
